FAERS Safety Report 10784415 (Version 1)
Quarter: 2015Q1

REPORT INFORMATION
  Report Type: Spontaneous
  Country: US (occurrence: None)
  Receive Date: 20150209
  Receipt Date: 20150209
  Transmission Date: 20150721
  Serious: No
  Sender: FDA-Public Use
  Company Number: None

PATIENT
  Age: 69 Year
  Sex: Female
  Weight: 95.26 kg

DRUGS (14)
  1. CLONAZEPAM. [Concomitant]
     Active Substance: CLONAZEPAM
  2. CHLORTRIMETON [Concomitant]
     Active Substance: CHLORPHENIRAMINE MALEATE
  3. TUDORZA PRESSAIR [Suspect]
     Active Substance: ACLIDINIUM BROMIDE
     Indication: CHRONIC OBSTRUCTIVE PULMONARY DISEASE
     Dosage: 1 PUFF Q 12 H
     Route: 055
     Dates: start: 20150114, end: 20150129
  4. TUDORZA PRESSAIR [Suspect]
     Active Substance: ACLIDINIUM BROMIDE
     Dosage: 1 PUFF Q 12 H
     Route: 055
     Dates: start: 20150114, end: 20150129
  5. VERAPAMIL [Concomitant]
     Active Substance: VERAPAMIL HYDROCHLORIDE
  6. ADVAIR HFA [Concomitant]
     Active Substance: FLUTICASONE PROPIONATE\SALMETEROL XINAFOATE
  7. OXYBUTYNIN [Concomitant]
     Active Substance: OXYBUTYNIN
  8. ALBUTEROL. [Concomitant]
     Active Substance: ALBUTEROL
  9. CLOTRIMAZOLE. [Concomitant]
     Active Substance: CLOTRIMAZOLE
  10. IBUPROFEN. [Concomitant]
     Active Substance: IBUPROFEN
  11. AMITRIPTYLINE [Concomitant]
     Active Substance: AMITRIPTYLINE
  12. SYMBICORT [Concomitant]
     Active Substance: BUDESONIDE\FORMOTEROL FUMARATE DIHYDRATE
  13. ASPIRIN. [Concomitant]
     Active Substance: ASPIRIN
  14. PIROXICAM. [Concomitant]
     Active Substance: PIROXICAM

REACTIONS (3)
  - Myocardial infarction [None]
  - Urinary tract infection [None]
  - Product substitution issue [None]

NARRATIVE: CASE EVENT DATE: 20150122
